FAERS Safety Report 12817922 (Version 1)
Quarter: 2016Q4

REPORT INFORMATION
  Report Type: Spontaneous
  Country: CH (occurrence: CH)
  Receive Date: 20161006
  Receipt Date: 20161006
  Transmission Date: 20170207
  Serious: Yes (Hospitalization)
  Sender: FDA-Public Use
  Company Number: CH-ROCHE-1838985

PATIENT
  Age: 66 Year
  Sex: Male

DRUGS (15)
  1. ASPIRIN CARDIO [Concomitant]
     Active Substance: ASPIRIN
     Dosage: 1-0-0-0
     Route: 048
  2. NEPHROTRANS [Concomitant]
     Active Substance: SODIUM BICARBONATE
     Dosage: 3-3-3-0
     Route: 065
  3. SELIPRAN [Concomitant]
     Active Substance: PRAVASTATIN SODIUM
     Dosage: 0-0-1-0
     Route: 065
  4. AUGMENTIN [Suspect]
     Active Substance: AMOXICILLIN\CLAVULANATE POTASSIUM
     Indication: PNEUMONIA
     Route: 065
     Dates: start: 20160827, end: 20160830
  5. ANAFRANIL [Concomitant]
     Active Substance: CLOMIPRAMINE HYDROCHLORIDE
     Dosage: 2-0-0-0
     Route: 065
  6. PREDNISON GALEPHARM [Concomitant]
     Active Substance: PREDNISONE
     Dosage: 1/2-0-0-0
     Route: 065
  7. ZANIDIP [Concomitant]
     Active Substance: LERCANIDIPINE HYDROCHLORIDE
     Dosage: 1-0-1-0
     Route: 065
  8. CARDURA [Suspect]
     Active Substance: DOXAZOSIN MESYLATE
     Indication: PRODUCT USED FOR UNKNOWN INDICATION
     Dosage: REPORTED AS CARDURA CR
     Route: 048
     Dates: start: 20160828
  9. BELOC ZOK [Concomitant]
     Active Substance: METOPROLOL SUCCINATE
     Dosage: 1-0-1-0
     Route: 065
  10. SURMONTIL [Concomitant]
     Active Substance: TRIMIPRAMINE MALEATE
     Dosage: 1 AND HALF-0-0-0
     Route: 065
  11. NEOTIGASON [Concomitant]
     Active Substance: ACITRETIN
     Dosage: 1-0-0-0
     Route: 065
  12. ROCEPHIN [Suspect]
     Active Substance: CEFTRIAXONE SODIUM
     Indication: PRODUCT USED FOR UNKNOWN INDICATION
     Route: 065
     Dates: start: 20160821, end: 20160826
  13. DAFALGAN [Concomitant]
     Active Substance: ACETAMINOPHEN
     Dosage: 1-1-1-1
     Route: 048
  14. IMUREK [Concomitant]
     Active Substance: AZATHIOPRINE
     Dosage: 1-0-0-0
     Route: 065
  15. NOVALGIN (SWITZERLAND) [Concomitant]
     Active Substance: DIPYRONE
     Dosage: 1-0-1-0
     Route: 065

REACTIONS (1)
  - Enteritis [Recovering/Resolving]

NARRATIVE: CASE EVENT DATE: 20160902
